FAERS Safety Report 7374392-8 (Version None)
Quarter: 2011Q1

REPORT INFORMATION
  Report Type: 
  Country: None (occurrence: None)
  Receive Date: 20110317
  Receipt Date: 20110228
  Transmission Date: 20110831
  Serious: Yes (Other)
  Sender: FDA-Public Use
  Company Number: JPI-P-014087

PATIENT
  Age: 61 Year
  Sex: Male
  Weight: 83.9154 kg

DRUGS (2)
  1. XYREM [Suspect]
     Indication: SLEEP APNOEA SYNDROME
     Dosage: ORAL; 6.5 GM (3.25 GM, 2 IN 1 D), ORAL
     Route: 048
     Dates: start: 20090601
  2. XYREM [Suspect]
     Indication: NARCOLEPSY
     Dosage: ORAL; 6.5 GM (3.25 GM, 2 IN 1 D), ORAL
     Route: 048
     Dates: start: 20090601

REACTIONS (8)
  - BACK PAIN [None]
  - ROAD TRAFFIC ACCIDENT [None]
  - NAUSEA [None]
  - HEADACHE [None]
  - TOTAL LUNG CAPACITY DECREASED [None]
  - DYSPNOEA [None]
  - CARDIOMYOPATHY [None]
  - DIARRHOEA [None]
